FAERS Safety Report 11421265 (Version 1)
Quarter: 2015Q3

REPORT INFORMATION
  Report Type: Spontaneous
  Country: BR (occurrence: BR)
  Receive Date: 20150826
  Receipt Date: 20150826
  Transmission Date: 20151125
  Serious: Yes (Hospitalization)
  Sender: FDA-Public Use
  Company Number: BR-PFIZER INC-2015278767

PATIENT
  Age: 93 Year
  Sex: Female
  Weight: 63 kg

DRUGS (3)
  1. LOPRIL-D [Concomitant]
     Indication: BLOOD PRESSURE MEASUREMENT
     Dosage: 2 DF, DAILY
     Dates: start: 2012
  2. TRENTAL [Concomitant]
     Active Substance: PENTOXIFYLLINE
     Indication: PERIPHERAL VASCULAR DISORDER
     Dosage: 1 DF, DAILY
     Dates: start: 2012
  3. LIPITOR [Suspect]
     Active Substance: ATORVASTATIN CALCIUM
     Indication: BLOOD CHOLESTEROL INCREASED
     Dosage: 10 MG, DAILY
     Route: 048
     Dates: start: 2012

REACTIONS (3)
  - Cholelithiasis [Unknown]
  - Renal colic [Unknown]
  - Abdominal pain [Unknown]
